FAERS Safety Report 15750378 (Version 1)
Quarter: 2018Q4

REPORT INFORMATION
  Report Type: Spontaneous
  Country: US (occurrence: US)
  Receive Date: 20181205
  Receipt Date: 20181205
  Transmission Date: 20190205
  Serious: No
  Sender: FDA-Public Use
  Company Number: None

PATIENT
  Age: 25 Year
  Sex: Female

DRUGS (1)
  1. HYDROXYPROGESTERONE 250MG/ML (5 MDV) [Suspect]
     Active Substance: HYDROXYPROGESTERONE
     Indication: POSTPONEMENT OF PRETERM DELIVERY
     Dosage: ?          OTHER FREQUENCY:UNKNOWN;?
     Route: 030
     Dates: start: 201812

REACTIONS (2)
  - Off label use [None]
  - Product prescribing issue [None]

NARRATIVE: CASE EVENT DATE: 20181204
